FAERS Safety Report 14011259 (Version 1)
Quarter: 2017Q3

REPORT INFORMATION
  Report Type: Spontaneous
  Country: TR (occurrence: TR)
  Receive Date: 20170926
  Receipt Date: 20170926
  Transmission Date: 20171128
  Serious: Yes (Other)
  Sender: FDA-Public Use
  Company Number: TR-ROCHE-1998915

PATIENT
  Age: 34 Year
  Sex: Female

DRUGS (3)
  1. CREBROS [Concomitant]
     Indication: PRODUCT USED FOR UNKNOWN INDICATION
     Dosage: UNK
     Route: 065
  2. XOLAIR [Suspect]
     Active Substance: OMALIZUMAB
     Indication: URTICARIA CHRONIC
     Route: 065
     Dates: start: 20170808
  3. XOLAIR [Suspect]
     Active Substance: OMALIZUMAB
     Dosage: UNK
     Route: 065
     Dates: start: 20170907

REACTIONS (2)
  - Autoimmune thyroiditis [Unknown]
  - Urticaria [Recovered/Resolved]
